FAERS Safety Report 8834346 (Version 1)
Quarter: 2012Q4

REPORT INFORMATION
  Report Type: Spontaneous
  Country: US (occurrence: None)
  Receive Date: 20121009
  Receipt Date: 20121009
  Transmission Date: 20130627
  Serious: Yes (Hospitalization, Other)
  Sender: FDA-Public Use
  Company Number: US-MACLERODS PHARMA-000011

PATIENT
  Age: 60 Year
  Sex: Female

DRUGS (3)
  1. AMLODIPINE [Suspect]
     Indication: DRUG USE FOR UNKNOWN INDICATION
     Route: 048
  2. ASPIRIN(ASPIRIN) [Concomitant]
  3. METOPROLOL(METOPROLOL) [Concomitant]

REACTIONS (8)
  - Self-medication [None]
  - Accidental overdose [None]
  - Toxicity to various agents [None]
  - Ileus paralytic [None]
  - Lactic acidosis [None]
  - Shock [None]
  - Respiratory failure [None]
  - Shock [None]
